FAERS Safety Report 4590195-1 (Version None)
Quarter: 2005Q1

REPORT INFORMATION
  Report Type: 
  Country: None (occurrence: None)
  Receive Date: 20050217
  Receipt Date: 20050202
  Transmission Date: 20050727
  Serious: Yes (Other)
  Sender: FDA-Public Use
  Company Number: 2005028975

PATIENT
  Sex: Male

DRUGS (1)
  1. DETROL LA [Suspect]
     Indication: ILL-DEFINED DISORDER

REACTIONS (4)
  - HIP SURGERY [None]
  - KNEE OPERATION [None]
  - MICTURITION URGENCY [None]
  - MIDDLE INSOMNIA [None]
